FAERS Safety Report 15819544 (Version 1)
Quarter: 2019Q1

REPORT INFORMATION
  Report Type: Spontaneous
  Country: DE (occurrence: DE)
  Receive Date: 20190114
  Receipt Date: 20190114
  Transmission Date: 20190417
  Serious: Yes (Hospitalization, Other)
  Sender: FDA-Public Use
  Company Number: DE-009507513-1901DEU002316

PATIENT
  Age: 59 Year
  Sex: Female

DRUGS (1)
  1. PEMBROLIZUMAB. [Suspect]
     Active Substance: PEMBROLIZUMAB
     Indication: LUNG ADENOCARCINOMA
     Dosage: 16 CYCLES
     Dates: start: 201710, end: 201810

REACTIONS (11)
  - Nausea [Not Recovered/Not Resolved]
  - Malignant neoplasm progression [Unknown]
  - Muscle hypertrophy [Unknown]
  - Lymphangiosis carcinomatosa [Unknown]
  - General physical health deterioration [Unknown]
  - Bronchopulmonary aspergillosis [Unknown]
  - Pulmonary embolism [Unknown]
  - Diarrhoea [Unknown]
  - Vomiting [Not Recovered/Not Resolved]
  - Weight decreased [Unknown]
  - Colitis [Unknown]

NARRATIVE: CASE EVENT DATE: 20181017
